FAERS Safety Report 23804374 (Version 2)
Quarter: 2024Q2

REPORT INFORMATION
  Report Type: Spontaneous
  Country: US (occurrence: US)
  Receive Date: 20240501
  Receipt Date: 20240514
  Transmission Date: 20240716
  Serious: No
  Sender: FDA-Public Use
  Company Number: US-BAUSCHBL-2024BNL026010

PATIENT
  Sex: Female

DRUGS (2)
  1. XIIDRA [Suspect]
     Active Substance: LIFITEGRAST
     Indication: Dry eye
     Route: 047
     Dates: start: 202404
  2. XIIDRA [Suspect]
     Active Substance: LIFITEGRAST
     Route: 047
     Dates: start: 202404

REACTIONS (6)
  - Eye irritation [Unknown]
  - Foreign body sensation in eyes [Unknown]
  - Rhinorrhoea [Unknown]
  - Vision blurred [Unknown]
  - Intentional product use issue [Unknown]
  - Product packaging quantity issue [Unknown]

NARRATIVE: CASE EVENT DATE: 20240401
